FAERS Safety Report 4567078-6 (Version None)
Quarter: 2005Q1

REPORT INFORMATION
  Report Type: 
  Country: None (occurrence: None)
  Receive Date: 20050126
  Receipt Date: 20050111
  Transmission Date: 20050727
  Serious: Yes (Other)
  Sender: FDA-Public Use
  Company Number: USA050187955

PATIENT
  Age: 55 Year
  Sex: Male

DRUGS (4)
  1. XIGRIS [Suspect]
     Indication: SEPSIS
     Dates: start: 20050108, end: 20050111
  2. LEVOPHED [Concomitant]
  3. ANTIBIOTICS [Concomitant]
  4. PRESSORS [Concomitant]

REACTIONS (1)
  - DEEP VEIN THROMBOSIS [None]
